FAERS Safety Report 17458496 (Version 2)
Quarter: 2020Q1

REPORT INFORMATION
  Report Type: Spontaneous
  Country: ES (occurrence: ES)
  Receive Date: 20200225
  Receipt Date: 20200303
  Transmission Date: 20200409
  Serious: Yes (Other)
  Sender: FDA-Public Use
  Company Number: ES-JNJFOC-20200231755

PATIENT
  Age: 30 Year
  Sex: Male
  Weight: 125 kg

DRUGS (1)
  1. TREVICTA [Suspect]
     Active Substance: PALIPERIDONE PALMITATE
     Indication: SCHIZOTYPAL PERSONALITY DISORDER
     Dosage: EVERY 4 MONTHS 1 PRECHARGED SYRINGE WITH 1.750ML
     Route: 030
     Dates: start: 20180202

REACTIONS (4)
  - Inappropriate schedule of product administration [Unknown]
  - Off label use [Unknown]
  - Dyspnoea [Unknown]
  - Overweight [Unknown]

NARRATIVE: CASE EVENT DATE: 201802
